FAERS Safety Report 6857690-3 (Version None)
Quarter: 2010Q3

REPORT INFORMATION
  Report Type: 
  Country: None (occurrence: None)
  Receive Date: 20100719
  Receipt Date: 20080130
  Transmission Date: 20110219
  Serious: No
  Sender: FDA-Public Use
  Company Number: US-PFIZER INC-2008010583

PATIENT
  Sex: Male
  Weight: 104.5 kg

DRUGS (2)
  1. CHANTIX [Suspect]
     Indication: SMOKING CESSATION THERAPY
     Dates: start: 20070201, end: 20070501
  2. LORAZEPAM [Concomitant]
     Indication: ANXIETY

REACTIONS (4)
  - HYPOAESTHESIA [None]
  - MACROCYTOSIS [None]
  - NEUROPATHY PERIPHERAL [None]
  - PLATELET COUNT INCREASED [None]
